FAERS Safety Report 8022073 (Version 2)
Quarter: 2013Q2

REPORT INFORMATION
  Report Type: Report from Study
  Country: MX (occurrence: MX)
  Receive Date: 20110705
  Receipt Date: 20130605
  Transmission Date: 20140414
  Serious: Yes (Other)
  Sender: FDA-Public Use
  Company Number: PHHY2011MX56042

PATIENT
  Age: 66 Year
  Sex: Female

DRUGS (7)
  1. CO-DIOVAN [Suspect]
     Indication: HYPERTENSION
     Dosage: 2 DF (160/12.5MG), DAILY
     Route: 048
     Dates: start: 201102
  2. CO-DIOVAN [Suspect]
     Dosage: 1 DF (160/25MG), DAILY
     Route: 048
     Dates: start: 201103, end: 201104
  3. COLCHICUM [Concomitant]
     Dosage: UNK UKN, UNK
  4. PULSATILLA [Concomitant]
     Dosage: UNK UKN, UNK
  5. ACONITUM [Concomitant]
     Dosage: UNK UKN, UNK
  6. RIVOTRIL [Concomitant]
     Dosage: UNK UKN, UNK
  7. ATENOLOL [Concomitant]
     Dosage: UNK UKN, UNK

REACTIONS (6)
  - Arrhythmia [Not Recovered/Not Resolved]
  - Stress [Not Recovered/Not Resolved]
  - Dizziness [Not Recovered/Not Resolved]
  - Fatigue [Not Recovered/Not Resolved]
  - Anxiety [Not Recovered/Not Resolved]
  - Pain in extremity [Not Recovered/Not Resolved]
